FAERS Safety Report 7067618-1 (Version None)
Quarter: 2010Q4

REPORT INFORMATION
  Report Type: 
  Country: None (occurrence: None)
  Receive Date: 20101019
  Receipt Date: 20101012
  Transmission Date: 20110411
  Serious: Yes (Hospitalization)
  Sender: FDA-Public Use
  Company Number: KV201000322

PATIENT
  Age: 36 Year
  Sex: Male

DRUGS (1)
  1. EVAMIST [Suspect]
     Indication: OESTROGEN THERAPY
     Dosage: 0.1 MG, TWICE WEEKLY, TRANSDERMAL
     Route: 062

REACTIONS (2)
  - CONVULSION [None]
  - MENINGIOMA [None]
